FAERS Safety Report 24201587 (Version 1)
Quarter: 2024Q3

REPORT INFORMATION
  Report Type: Spontaneous
  Country: US (occurrence: None)
  Receive Date: 20240811
  Receipt Date: 20240811
  Transmission Date: 20241016
  Serious: Yes (Disabling)
  Sender: Public
  Company Number: None

PATIENT
  Age: 58 Year
  Sex: Female
  Weight: 91 kg

DRUGS (7)
  1. DUPIXENT [Suspect]
     Active Substance: DUPILUMAB
     Indication: Chronic rhinosinusitis with nasal polyps
     Dosage: 1 INJECTION EVERY 2 WEEKS SUBCUTANEOUS
     Route: 058
     Dates: start: 20231219, end: 20240508
  2. GABAPENTIN [Concomitant]
     Active Substance: GABAPENTIN
  3. CETIRIZINE [Concomitant]
     Active Substance: CETIRIZINE HYDROCHLORIDE
  4. MONTELUKAST [Concomitant]
     Active Substance: MONTELUKAST SODIUM
  5. IBUPROFEN [Concomitant]
     Active Substance: IBUPROFEN
  6. NAPROXEN [Concomitant]
     Active Substance: NAPROXEN
  7. VITAMINS [Concomitant]
     Active Substance: VITAMINS

REACTIONS (7)
  - Arthralgia [None]
  - Arthralgia [None]
  - Pain in extremity [None]
  - Arthralgia [None]
  - Arthralgia [None]
  - Arthralgia [None]
  - Walking disability [None]

NARRATIVE: CASE EVENT DATE: 20240103
